FAERS Safety Report 7167362-6 (Version None)
Quarter: 2010Q4

REPORT INFORMATION
  Report Type: 
  Country: None (occurrence: None)
  Receive Date: 20101216
  Receipt Date: 20101209
  Transmission Date: 20110411
  Serious: Yes (Death)
  Sender: FDA-Public Use
  Company Number: AU-NAPPMUNDI-GBR-2010-0007491

PATIENT
  Age: 22 Year
  Sex: Male

DRUGS (7)
  1. THEOPHYLLINE [Suspect]
     Indication: PRODUCT USED FOR UNKNOWN INDICATION
  2. DIAZEPAM [Suspect]
  3. METHADONE [Suspect]
  4. ACETAMINOPHEN [Suspect]
  5. CODEINE [Suspect]
  6. NORDIAZEPAM [Suspect]
  7. SERTRALINE [Suspect]

REACTIONS (2)
  - CARDIO-RESPIRATORY ARREST [None]
  - DRUG INTERACTION [None]
